FAERS Safety Report 12031860 (Version 1)
Quarter: 2016Q1

REPORT INFORMATION
  Report Type: Report from Study
  Country: US (occurrence: US)
  Receive Date: 20160207
  Receipt Date: 20160207
  Transmission Date: 20160526
  Serious: No
  Sender: FDA-Public Use
  Company Number: US-ABBVIE-15K-163-1508774-00

PATIENT
  Age: 62 Year
  Sex: Male

DRUGS (3)
  1. HUMIRA [Suspect]
     Active Substance: ADALIMUMAB
     Route: 058
     Dates: start: 201511
  2. HUMIRA [Suspect]
     Active Substance: ADALIMUMAB
     Indication: PSORIASIS
     Dosage: DAY ONE
     Route: 058
     Dates: start: 20151116, end: 20151116
  3. HUMIRA [Suspect]
     Active Substance: ADALIMUMAB
     Dosage: DAY SEVEN
     Route: 058
     Dates: start: 20151122, end: 20151122

REACTIONS (5)
  - Nausea [Recovered/Resolved]
  - Abdominal discomfort [Unknown]
  - Inappropriate schedule of drug administration [Unknown]
  - Headache [Unknown]
  - Headache [Recovered/Resolved]

NARRATIVE: CASE EVENT DATE: 201511
